FAERS Safety Report 7753332-3 (Version None)
Quarter: 2011Q3

REPORT INFORMATION
  Report Type: 
  Country: None (occurrence: None)
  Receive Date: 20110915
  Receipt Date: 20110906
  Transmission Date: 20111222
  Serious: Yes (Other)
  Sender: FDA-Public Use
  Company Number: US-BAYER-2011-063397

PATIENT
  Age: 37 Year
  Sex: Female
  Weight: 56.689 kg

DRUGS (1)
  1. MIRENA [Suspect]
     Indication: CONTRACEPTION
     Dosage: 20 MCG/24HR, CONT
     Route: 015
     Dates: start: 20110609, end: 20110613

REACTIONS (2)
  - VAGINAL HAEMORRHAGE [None]
  - PAIN [None]
